FAERS Safety Report 6549814-2 (Version None)
Quarter: 2010Q1

REPORT INFORMATION
  Report Type: 
  Country: None (occurrence: None)
  Receive Date: 20100125
  Receipt Date: 20100121
  Transmission Date: 20100710
  Serious: Yes (Death, Hospitalization, Other)
  Sender: FDA-Public Use
  Company Number: CL-ABBOTT-10P-034-0619221-00

PATIENT
  Age: 13 Year
  Sex: Female

DRUGS (14)
  1. CYCLOSPORINE [Suspect]
     Indication: MYELODYSPLASTIC SYNDROME
  2. CYCLOSPORINE [Suspect]
     Indication: BONE MARROW FAILURE
  3. ESTROGEN [Suspect]
     Indication: METRORRHAGIA
     Route: 048
  4. ESTROGEN [Suspect]
     Route: 048
  5. GLUCOCORTICOIDS [Suspect]
     Indication: DRUG USE FOR UNKNOWN INDICATION
  6. GLUCOCORTICOIDS [Suspect]
     Dosage: INFUSION
  7. PREDNISONE TAB [Concomitant]
     Indication: MYELODYSPLASTIC SYNDROME
     Route: 048
  8. METHYLPREDNISOLONE [Concomitant]
     Indication: MYELODYSPLASTIC SYNDROME
  9. METHYLPREDNISOLONE [Concomitant]
     Indication: BONE MARROW FAILURE
  10. TRANEXAMIC ACID [Concomitant]
     Indication: METRORRHAGIA
  11. RED BLOOD CELLS [Concomitant]
     Indication: METRORRHAGIA
     Dosage: TRANSFUSIONS EVERY 21 DAYS
  12. PLATELETS [Concomitant]
     Indication: METRORRHAGIA
     Dosage: TRANSFUSIONS
  13. ANTITHYMOCYTE LYMPHYGLOBULIN [Concomitant]
     Indication: DRUG USE FOR UNKNOWN INDICATION
  14. ANTITHYMOCYTE LYMPHYGLOBULIN [Concomitant]

REACTIONS (1)
  - PELIOSIS HEPATIS [None]
